FAERS Safety Report 24297555 (Version 1)
Quarter: 2024Q3

REPORT INFORMATION
  Report Type: Spontaneous
  Country: US (occurrence: None)
  Receive Date: 20240906
  Receipt Date: 20240906
  Transmission Date: 20241016
  Serious: Yes (unspecified)
  Sender: Public
  Company Number: None

PATIENT
  Sex: Female

DRUGS (2)
  1. BENLYSTA [Suspect]
     Active Substance: BELIMUMAB
  2. BENLYSTA [Concomitant]
     Active Substance: BELIMUMAB

REACTIONS (5)
  - Fatigue [None]
  - Nausea [None]
  - Alopecia [None]
  - Bone pain [None]
  - Pain in extremity [None]

NARRATIVE: CASE EVENT DATE: 20240904
